FAERS Safety Report 7090208-1 (Version None)
Quarter: 2010Q4

REPORT INFORMATION
  Report Type: 
  Country: None (occurrence: None)
  Receive Date: 20101109
  Receipt Date: 20101026
  Transmission Date: 20110411
  Serious: Yes (Death, Hospitalization)
  Sender: FDA-Public Use
  Company Number: US-JNJFOC-20101007666

PATIENT
  Age: 55 Year
  Sex: Female

DRUGS (5)
  1. INFLIXIMAB, RECOMBINANT [Suspect]
     Indication: CROHN'S DISEASE
     Route: 042
  2. METHYLPREDNISOLONE [Suspect]
     Indication: CROHN'S DISEASE
  3. METHYLPREDNISOLONE [Suspect]
  4. AZATHIOPRINE [Suspect]
     Indication: CROHN'S DISEASE
     Dosage: FOR 4 WEEKS
  5. PREDNISONE [Suspect]
     Indication: CROHN'S DISEASE

REACTIONS (21)
  - ABDOMINAL HERNIA [None]
  - ABSCESS [None]
  - ASPERGILLOSIS [None]
  - BRAIN ABSCESS [None]
  - BRAIN MASS [None]
  - CANDIDA TEST POSITIVE [None]
  - CEREBRAL ISCHAEMIA [None]
  - ELECTROCARDIOGRAM ABNORMAL [None]
  - ELECTROCARDIOGRAM ST SEGMENT ELEVATION [None]
  - GASTRIC DISORDER [None]
  - GASTROINTESTINAL NECROSIS [None]
  - INTESTINAL PERFORATION [None]
  - LUNG ABSCESS [None]
  - MULTI-ORGAN FAILURE [None]
  - MYOCARDIAC ABSCESS [None]
  - PANCREATITIS [None]
  - PNEUMONIA CYTOMEGALOVIRAL [None]
  - PULMONARY INFARCTION [None]
  - RENAL ABSCESS [None]
  - THYROID GLAND ABSCESS [None]
  - TROPONIN INCREASED [None]
